FAERS Safety Report 25292979 (Version 1)
Quarter: 2025Q2

REPORT INFORMATION
  Report Type: Spontaneous
  Country: US (occurrence: US)
  Receive Date: 20250510
  Receipt Date: 20250510
  Transmission Date: 20250716
  Serious: No
  Sender: SANOFI AVENTIS
  Company Number: US-SA-2025SA128410

PATIENT
  Age: 65 Year
  Sex: Male
  Weight: 63.95 kg

DRUGS (3)
  1. DUPIXENT [Suspect]
     Active Substance: DUPILUMAB
     Indication: Dermatitis atopic
     Route: 058
     Dates: start: 20250429, end: 20250429
  2. LORAZEPAM [Suspect]
     Active Substance: LORAZEPAM
     Indication: Anxiety
     Dates: end: 20250427
  3. LORAZEPAM [Suspect]
     Active Substance: LORAZEPAM
     Indication: Sleep disorder

REACTIONS (9)
  - Paraesthesia [Unknown]
  - Dry throat [Unknown]
  - Throat tightness [Unknown]
  - Dyspnoea [Unknown]
  - Feeling hot [Unknown]
  - Sinus disorder [Unknown]
  - Insomnia [Unknown]
  - Anxiety [Unknown]
  - Decreased appetite [Unknown]

NARRATIVE: CASE EVENT DATE: 20250427
